FAERS Safety Report 19007427 (Version 1)
Quarter: 2021Q1

REPORT INFORMATION
  Report Type: Spontaneous
  Country: US (occurrence: US)
  Receive Date: 20210315
  Receipt Date: 20210315
  Transmission Date: 20210420
  Serious: Yes (Hospitalization, Other)
  Sender: FDA-Public Use
  Company Number: US-SA-2021SA079403

PATIENT
  Age: 2 Year
  Sex: Male

DRUGS (10)
  1. CELLCEPT [Suspect]
     Active Substance: MYCOPHENOLATE MOFETIL\MYCOPHENOLATE MOFETIL HYDROCHLORIDE
     Indication: PROPHYLAXIS AGAINST GRAFT VERSUS HOST DISEASE
  2. MELPHALAN. [Concomitant]
     Active Substance: MELPHALAN
     Indication: THALASSAEMIA
  3. THIOTEPA. [Concomitant]
     Active Substance: THIOTEPA
     Indication: THALASSAEMIA BETA
  4. THIOTEPA. [Concomitant]
     Active Substance: THIOTEPA
     Indication: THALASSAEMIA
  5. FLUDARABINE [Concomitant]
     Active Substance: FLUDARABINE PHOSPHATE
     Indication: THALASSAEMIA
  6. CAMPATH [Suspect]
     Active Substance: ALEMTUZUMAB
     Indication: THALASSAEMIA BETA
  7. CYCLOSPORINE. [Suspect]
     Active Substance: CYCLOSPORINE
     Indication: PROPHYLAXIS AGAINST GRAFT VERSUS HOST DISEASE
  8. FLUDARABINE [Concomitant]
     Active Substance: FLUDARABINE PHOSPHATE
     Indication: THALASSAEMIA BETA
  9. CAMPATH [Suspect]
     Active Substance: ALEMTUZUMAB
     Indication: THALASSAEMIA
  10. MELPHALAN. [Concomitant]
     Active Substance: MELPHALAN
     Indication: THALASSAEMIA BETA

REACTIONS (6)
  - Clostridium difficile infection [Unknown]
  - Autoimmune haemolytic anaemia [Recovering/Resolving]
  - Anaemia [Recovering/Resolving]
  - Off label use [Recovering/Resolving]
  - Pyrexia [Recovering/Resolving]
  - Parainfluenzae virus infection [Unknown]
